FAERS Safety Report 4431603-6 (Version None)
Quarter: 2004Q3

REPORT INFORMATION
  Report Type: 
  Country: None (occurrence: None)
  Receive Date: 20040726
  Receipt Date: 20031208
  Transmission Date: 20050211
  Serious: No
  Sender: FDA-Public Use
  Company Number: REM_00044_2003

PATIENT
  Age: 22 Year
  Sex: Female
  Weight: 47.1741 kg

DRUGS (3)
  1. REMODULIN [Suspect]
     Indication: PULMONARY HYPERTENSION
     Dosage: QQ.25 NG/KG/MIN CONTINUOUS SC
     Route: 058
     Dates: start: 20030501
  2. ULTRAM [Concomitant]
  3. PLO GAL [Concomitant]

REACTIONS (5)
  - EPISTAXIS [None]
  - HAEMATOCHEZIA [None]
  - INFUSION SITE PAIN [None]
  - INJECTION SITE HAEMORRHAGE [None]
  - PLATELET COUNT DECREASED [None]
